FAERS Safety Report 10402176 (Version 1)
Quarter: 2014Q3

REPORT INFORMATION
  Report Type: Spontaneous
  Country: US (occurrence: None)
  Receive Date: 20140821
  Receipt Date: 20140821
  Transmission Date: 20150326
  Serious: Yes (Other)
  Sender: FDA-Public Use
  Company Number: None

PATIENT
  Age: 28 Year
  Sex: Female
  Weight: 68.04 kg

DRUGS (1)
  1. XULANE [Suspect]
     Active Substance: ETHINYL ESTRADIOL\NORELGESTROMIN
     Indication: CONTRACEPTION
     Dosage: 3 WEEKDLY PATCHWA WEEKLY APPLIED AS MEDICATED PATCH TO SKIN
     Dates: start: 20140720, end: 20140729

REACTIONS (10)
  - Application site pain [None]
  - Application site irritation [None]
  - Skin discolouration [None]
  - Application site swelling [None]
  - Product substitution issue [None]
  - Rash [None]
  - Hypertension [None]
  - Discomfort [None]
  - Product quality issue [None]
  - Application site pruritus [None]

NARRATIVE: CASE EVENT DATE: 20140801
